FAERS Safety Report 8802929 (Version 1)
Quarter: 2012Q4

REPORT INFORMATION
  Report Type: 
  Country: GB (occurrence: GB)
  Receive Date: 20120924
  Receipt Date: 20120924
  Transmission Date: 20130627
  Serious: Yes (Hospitalization)
  Sender: FDA-Public Use
  Company Number: GB-PFIZER INC-2012229204

PATIENT
  Age: 46 Year
  Sex: Male
  Weight: 70 kg

DRUGS (3)
  1. SULFASALAZINE [Suspect]
     Indication: POLYARTHRITIS
     Dosage: 500 mg, 2x/day
     Dates: start: 20120810
  2. SULFASALAZINE [Suspect]
     Dosage: 1000mg in the morning and 500mg at night
     Dates: start: 20120824, end: 20120904
  3. NAPROXEN [Concomitant]
     Dosage: 500 mg, 2x/day
     Dates: end: 20120908

REACTIONS (3)
  - Neutropenia [Recovering/Resolving]
  - Sepsis [Recovering/Resolving]
  - C-reactive protein increased [Unknown]
